FAERS Safety Report 5455353-2 (Version None)
Quarter: 2007Q3

REPORT INFORMATION
  Report Type: 
  Country: None (occurrence: None)
  Receive Date: 20070918
  Receipt Date: 20070917
  Transmission Date: 20080115
  Serious: Yes (Hospitalization)
  Sender: FDA-Public Use
  Company Number: US-BRISTOL-MYERS SQUIBB COMPANY-13910286

PATIENT
  Age: 44 Year
  Sex: Male
  Weight: 90 kg

DRUGS (3)
  1. CARBOPLATIN [Suspect]
     Indication: SMALL CELL LUNG CANCER STAGE UNSPECIFIED
     Dosage: 495 MG DAY 1 OF 21-DAY CYCLE.
     Route: 042
     Dates: start: 20070313, end: 20070724
  2. IRINOTECAN HCL [Suspect]
     Indication: SMALL CELL LUNG CANCER STAGE UNSPECIFIED
     Dosage: 50 MG/M2 ON DAYS 1 AND 8 OF 21-DAY CYCLE FROM 13-MAR-2007 TO 24-JUL-2007.
     Route: 042
     Dates: start: 20070501, end: 20070731
  3. CYCLOBENZAPRINE HCL [Concomitant]
     Dates: start: 20070731

REACTIONS (1)
  - PANCREATITIS ACUTE [None]
